FAERS Safety Report 6415205-8 (Version None)
Quarter: 2009Q4

REPORT INFORMATION
  Report Type: 
  Country: None (occurrence: None)
  Receive Date: 20091027
  Receipt Date: 20091014
  Transmission Date: 20100525
  Serious: Yes (Hospitalization, Disabling, Other)
  Sender: FDA-Public Use
  Company Number: US-MYLANLABS-2009S1018074

PATIENT
  Age: 41 Year
  Sex: Male

DRUGS (3)
  1. PHENYTOIN SODIUM [Suspect]
     Indication: CONVULSION PROPHYLAXIS
     Route: 048
     Dates: start: 20050501, end: 20061015
  2. PHENOBARBITAL [Suspect]
     Indication: CONVULSION PROPHYLAXIS
     Route: 048
     Dates: start: 20061002, end: 20061019
  3. DILANTIN [Suspect]
     Indication: CONVULSION PROPHYLAXIS
     Route: 048

REACTIONS (2)
  - CONVULSION [None]
  - STEVENS-JOHNSON SYNDROME [None]
